FAERS Safety Report 13773302 (Version 1)
Quarter: 2017Q3

REPORT INFORMATION
  Report Type: Spontaneous
  Country: US (occurrence: US)
  Receive Date: 20170720
  Receipt Date: 20170720
  Transmission Date: 20171127
  Serious: No
  Sender: FDA-Public Use
  Company Number: US-GALDERMA-US17002416

PATIENT
  Sex: Female
  Weight: 90.72 kg

DRUGS (9)
  1. ORACEA [Suspect]
     Active Substance: DOXYCYCLINE
     Indication: SKIN TIGHTNESS
     Route: 048
     Dates: start: 2013, end: 2015
  2. ARMATHYROID [Concomitant]
     Indication: HYPOTHYROIDISM
  3. ORACEA [Suspect]
     Active Substance: DOXYCYCLINE
     Indication: INFLAMMATION
     Route: 048
     Dates: start: 2015
  4. ORACEA [Suspect]
     Active Substance: DOXYCYCLINE
     Indication: PAIN
     Route: 048
     Dates: start: 2013
  5. ORACEA [Suspect]
     Active Substance: DOXYCYCLINE
     Indication: HEADACHE
  6. AMBIEN [Concomitant]
     Active Substance: ZOLPIDEM TARTRATE
     Indication: SLEEP DISORDER
  7. GABAPENTIN. [Concomitant]
     Active Substance: GABAPENTIN
     Indication: NEURALGIA
  8. TRAMADOL. [Concomitant]
     Active Substance: TRAMADOL
     Indication: PAIN
  9. ORACEA [Suspect]
     Active Substance: DOXYCYCLINE
     Indication: ROSACEA

REACTIONS (9)
  - Overdose [Recovered/Resolved]
  - Incorrect drug administration duration [Recovered/Resolved]
  - Blood pressure increased [Unknown]
  - Inappropriate schedule of drug administration [Recovered/Resolved]
  - Blood glucose increased [Recovering/Resolving]
  - Product use in unapproved indication [Recovered/Resolved]
  - Skin burning sensation [Unknown]
  - Abdominal discomfort [Unknown]
  - Diarrhoea [Recovered/Resolved]

NARRATIVE: CASE EVENT DATE: 2013
